FAERS Safety Report 5582997-X (Version None)
Quarter: 2008Q1

REPORT INFORMATION
  Report Type: 
  Country: None (occurrence: None)
  Receive Date: 20080107
  Receipt Date: 20071227
  Transmission Date: 20080703
  Serious: Yes (Other)
  Sender: FDA-Public Use
  Company Number: IT-ASTRAZENECA-2008SE00053

PATIENT
  Age: 21921 Day
  Sex: Male

DRUGS (1)
  1. PROVISACOR [Suspect]
     Route: 048
     Dates: start: 20061201, end: 20071101

REACTIONS (1)
  - LICHENOID KERATOSIS [None]
